FAERS Safety Report 14873571 (Version 1)
Quarter: 2018Q2

REPORT INFORMATION
  Report Type: Spontaneous
  Country: US (occurrence: US)
  Receive Date: 20180510
  Receipt Date: 20180510
  Transmission Date: 20180711
  Serious: Yes (Hospitalization)
  Sender: FDA-Public Use
  Company Number: US-FRESENIUS MEDICAL CARE RENAL THERAPIES GROUP-FMC-1805-000864

PATIENT
  Sex: Male

DRUGS (16)
  1. ASPRIN [Concomitant]
     Active Substance: ASPIRIN
  2. MONTELUKAST SODIUM. [Concomitant]
     Active Substance: MONTELUKAST SODIUM
  3. ZOLOFT [Concomitant]
     Active Substance: SERTRALINE HYDROCHLORIDE
  4. ROCALTROL [Concomitant]
     Active Substance: CALCITRIOL
  5. INSULIN LISPRO [Concomitant]
     Active Substance: INSULIN LISPRO
  6. RENVELA [Concomitant]
     Active Substance: SEVELAMER CARBONATE
  7. INSULIN GLARGINE [Concomitant]
     Active Substance: INSULIN GLARGINE
  8. HUMULIN R [Concomitant]
     Active Substance: INSULIN HUMAN
  9. ISOSORBIDE MONONITRATE. [Concomitant]
     Active Substance: ISOSORBIDE MONONITRATE
  10. CRESTOR [Concomitant]
     Active Substance: ROSUVASTATIN CALCIUM
  11. CLONIDINE. [Concomitant]
     Active Substance: CLONIDINE
  12. ONDANSETRON HCL [Concomitant]
     Active Substance: ONDANSETRON HYDROCHLORIDE
  13. LACTULOSE. [Concomitant]
     Active Substance: LACTULOSE
  14. DELFLEX [Suspect]
     Active Substance: CALCIUM CHLORIDE\DEXTROSE\MAGNESIUM CHLORIDE\SODIUM CHLORIDE\SODIUM LACTATE
     Indication: END STAGE RENAL DISEASE
     Route: 033
  15. FUROSEMIDE. [Concomitant]
     Active Substance: FUROSEMIDE
  16. DOCQLACE [Concomitant]
     Active Substance: DOCUSATE SODIUM

REACTIONS (3)
  - Nausea [Recovered/Resolved]
  - Abdominal pain [Recovered/Resolved]
  - Vomiting [Recovered/Resolved]
